FAERS Safety Report 6551383-8 (Version None)
Quarter: 2010Q1

REPORT INFORMATION
  Report Type: 
  Country: None (occurrence: None)
  Receive Date: 20100126
  Receipt Date: 20100118
  Transmission Date: 20100710
  Serious: Yes (Disabling)
  Sender: FDA-Public Use
  Company Number: FR-ROCHE-680665

PATIENT
  Sex: Female

DRUGS (2)
  1. XELODA [Suspect]
     Route: 048
     Dates: start: 20090907
  2. TAMOXIFEN CITRATE [Concomitant]
     Dates: start: 20090901

REACTIONS (2)
  - ONYCHOLYSIS [None]
  - XEROSIS [None]
